FAERS Safety Report 6967180 (Version 2)
Quarter: 2014Q2

REPORT INFORMATION
  Report Type: Report from Study
  Country: GB (occurrence: GB)
  Receive Date: 20090413
  Receipt Date: 20140612
  Transmission Date: 20141212
  Serious: Yes (Other)
  Sender: FDA-Public Use
  Company Number: GB-ROCHE-625168

PATIENT
  Sex: Male
  Weight: 67.6 kg

DRUGS (3)
  1. CAPECITABINE [Suspect]
     Indication: RECTAL CANCER
     Route: 065
     Dates: start: 20080314, end: 20080325
  2. CAPECITABINE [Suspect]
     Route: 065
  3. OXALIPLATIN [Suspect]
     Indication: RECTAL CANCER
     Route: 065
     Dates: start: 20080314, end: 20080314

REACTIONS (2)
  - Embolism [Recovered/Resolved with Sequelae]
  - Deep vein thrombosis [Recovered/Resolved with Sequelae]
